FAERS Safety Report 16638895 (Version 1)
Quarter: 2019Q3

REPORT INFORMATION
  Report Type: Spontaneous
  Country: IT (occurrence: IT)
  Receive Date: 20190726
  Receipt Date: 20190726
  Transmission Date: 20191004
  Serious: Yes (Other)
  Sender: FDA-Public Use
  Company Number: IT-PFIZER INC-2019313907

PATIENT
  Age: 38 Year
  Sex: Female
  Weight: 68 kg

DRUGS (2)
  1. EXEMESTANE. [Suspect]
     Active Substance: EXEMESTANE
     Dosage: UNK
  2. DECAPEPTYL [GONADORELIN] [Concomitant]
     Active Substance: GONADORELIN
     Dosage: UNK
     Route: 030

REACTIONS (1)
  - Palpitations [Recovered/Resolved]
